FAERS Safety Report 12497381 (Version 1)
Quarter: 2016Q2

REPORT INFORMATION
  Report Type: Spontaneous
  Country: US (occurrence: US)
  Receive Date: 20160624
  Receipt Date: 20160624
  Transmission Date: 20160815
  Serious: Yes (Hospitalization)
  Sender: FDA-Public Use
  Company Number: US-MYLANLABS-2016M1026178

PATIENT

DRUGS (7)
  1. SERTRALINE [Interacting]
     Active Substance: SERTRALINE HYDROCHLORIDE
     Indication: ANXIETY
  2. TEMAZEPAM. [Interacting]
     Active Substance: TEMAZEPAM
     Indication: DEPRESSION
     Route: 065
  3. QUETIAPINE. [Interacting]
     Active Substance: QUETIAPINE
     Indication: INSOMNIA
     Route: 065
  4. VENLAFAXINE [Suspect]
     Active Substance: VENLAFAXINE HYDROCHLORIDE
     Indication: DEPRESSION
     Dosage: 150 MG/DAY
     Route: 065
  5. VENLAFAXINE [Suspect]
     Active Substance: VENLAFAXINE HYDROCHLORIDE
     Indication: ANXIETY
     Dosage: 75 MG/DAY
     Route: 065
  6. SERTRALINE [Interacting]
     Active Substance: SERTRALINE HYDROCHLORIDE
     Indication: DEPRESSION
     Route: 065
  7. TEMAZEPAM. [Interacting]
     Active Substance: TEMAZEPAM
     Indication: ANXIETY

REACTIONS (8)
  - Mood swings [Unknown]
  - Physical assault [Unknown]
  - Panic attack [Unknown]
  - Homicide [Unknown]
  - Drug interaction [Unknown]
  - Suicide attempt [Unknown]
  - Toxicity to various agents [Unknown]
  - Thinking abnormal [Unknown]
